FAERS Safety Report 11735962 (Version 1)
Quarter: 2015Q4

REPORT INFORMATION
  Report Type: Spontaneous
  Country: US (occurrence: US)
  Receive Date: 20151110
  Receipt Date: 20151110
  Transmission Date: 20160304
  Serious: No
  Sender: FDA-Public Use
  Company Number: US-ELI_LILLY_AND_COMPANY-US201206002087

PATIENT
  Age: 74 Year
  Sex: Female

DRUGS (1)
  1. FORTEO [Suspect]
     Active Substance: TERIPARATIDE
     Indication: OSTEOPOROSIS
     Dosage: 20 UG, QD
     Dates: start: 20120601, end: 20120607

REACTIONS (16)
  - Peripheral swelling [Unknown]
  - Joint swelling [Unknown]
  - Headache [Recovered/Resolved]
  - Visual impairment [Unknown]
  - Blood pressure increased [Unknown]
  - Muscular weakness [Unknown]
  - Vision blurred [Unknown]
  - Pain in extremity [Unknown]
  - Dyspnoea [Recovered/Resolved]
  - Musculoskeletal discomfort [Unknown]
  - Feeling abnormal [Unknown]
  - Bone pain [Unknown]
  - Nausea [Recovered/Resolved]
  - Heart rate increased [Unknown]
  - Arthralgia [Unknown]
  - Pain [Unknown]

NARRATIVE: CASE EVENT DATE: 20120602
